FAERS Safety Report 8701472 (Version 2)
Quarter: 2013Q4

REPORT INFORMATION
  Report Type: Spontaneous
  Country: GB (occurrence: GB)
  Receive Date: 20120802
  Receipt Date: 20131106
  Transmission Date: 20140711
  Serious: Yes (Other)
  Sender: FDA-Public Use
  Company Number: GB-009507513-1207GBR012607

PATIENT
  Age: 68 Year
  Sex: Male

DRUGS (3)
  1. TIMOPTOL UNIT DOSE EYE DROPS SOLUTION [Suspect]
     Indication: GLAUCOMA
     Dosage: UNK, QD
     Route: 047
     Dates: start: 201204, end: 201207
  2. LATANOPROST [Suspect]
     Indication: GLAUCOMA
     Dosage: UNK, QD
     Route: 047
     Dates: start: 201204, end: 201207
  3. XALATAN [Concomitant]
     Indication: GLAUCOMA
     Dosage: UNK

REACTIONS (2)
  - Intraocular pressure increased [Not Recovered/Not Resolved]
  - Product substitution issue [Not Recovered/Not Resolved]
